FAERS Safety Report 7751888-8 (Version None)
Quarter: 2011Q3

REPORT INFORMATION
  Report Type: 
  Country: None (occurrence: None)
  Receive Date: 20110914
  Receipt Date: 20110914
  Transmission Date: 20111222
  Serious: Yes (Hospitalization)
  Sender: FDA-Public Use
  Company Number: None

PATIENT
  Age: 58 Year
  Sex: Male
  Weight: 91.1 kg

DRUGS (1)
  1. METOPROLOL TARTRATE [Suspect]
     Indication: ATRIAL FIBRILLATION
     Dosage: 25 MG BID PO
     Route: 048
     Dates: start: 20110202, end: 20110225

REACTIONS (2)
  - CONDITION AGGRAVATED [None]
  - ASTHMA [None]
